FAERS Safety Report 17185954 (Version 1)
Quarter: 2019Q4

REPORT INFORMATION
  Report Type: Report from Study
  Country: CA (occurrence: CA)
  Receive Date: 20191220
  Receipt Date: 20191220
  Transmission Date: 20200122
  Serious: Yes (Hospitalization)
  Sender: FDA-Public Use
  Company Number: CA-TAIHO ONCOLOGY  INC-EU-2019-04217

PATIENT
  Age: 58 Year
  Sex: Male
  Weight: 55.4 kg

DRUGS (2)
  1. LONSURF [Suspect]
     Active Substance: TIPIRACIL HYDROCHLORIDE\TRIFLURIDINE
     Indication: COLORECTAL CANCER
     Dosage: CYCLE 1.
     Route: 048
     Dates: start: 20180924, end: 20181021
  2. LONSURF [Suspect]
     Active Substance: TIPIRACIL HYDROCHLORIDE\TRIFLURIDINE
     Dosage: CYCLES 2-9. CYCLES 7 - 9 WERE 35 DAYS CYCLES.?CURRENT CYCLE 9 STARTED ON 13/NOV/2019 AND WAS INTERRU
     Route: 048
     Dates: start: 20190304, end: 2019

REACTIONS (6)
  - Red blood cell count decreased [Unknown]
  - Hypotension [Unknown]
  - Blood calcium decreased [Unknown]
  - Platelet count decreased [Unknown]
  - Asthenia [Unknown]
  - White blood cell count decreased [Unknown]

NARRATIVE: CASE EVENT DATE: 2019
